FAERS Safety Report 5494101-7 (Version None)
Quarter: 2007Q4

REPORT INFORMATION
  Report Type: 
  Country: None (occurrence: None)
  Receive Date: 20071022
  Receipt Date: 20071006
  Transmission Date: 20080405
  Serious: Yes (Death)
  Sender: FDA-Public Use
  Company Number: 2007S1000436

PATIENT

DRUGS (5)
  1. CUBICIN [Suspect]
     Indication: INFECTION
  2. CUBICIN [Suspect]
     Indication: MYCOBACTERIUM ABSCESSUS INFECTION
  3. CUBICIN [Suspect]
     Indication: MYCOBACTERIUM CHELONEI INFECTION
  4. CUBICIN [Suspect]
     Indication: PNEUMONIA
  5. TIGECYCLINE [Concomitant]

REACTIONS (1)
  - DEATH [None]
